FAERS Safety Report 26123712 (Version 1)
Quarter: 2025Q4

REPORT INFORMATION
  Report Type: Spontaneous
  Country: US (occurrence: US)
  Receive Date: 20251205
  Receipt Date: 20251205
  Transmission Date: 20260119
  Serious: No
  Sender: PIRAMAL
  Company Number: US-PCCINC-2025-PPL-000682

PATIENT

DRUGS (1)
  1. GABLOFEN [Suspect]
     Active Substance: BACLOFEN
     Indication: Product used for unknown indication
     Dosage: 75 MICROGRAM, QD
     Route: 037

REACTIONS (2)
  - Muscle spasticity [Recovered/Resolved]
  - Drug ineffective [Recovered/Resolved]
